FAERS Safety Report 5013331-1 (Version None)
Quarter: 2006Q2

REPORT INFORMATION
  Report Type: 
  Country: None (occurrence: None)
  Receive Date: 20060530
  Receipt Date: 20060413
  Transmission Date: 20061013
  Serious: No
  Sender: FDA-Public Use
  Company Number: US-GLAXOSMITHKLINE-A0601654A

PATIENT
  Sex: Male

DRUGS (3)
  1. WELLBUTRIN XL [Suspect]
     Indication: DEPRESSION
     Dosage: 150MG PER DAY
     Route: 048
     Dates: start: 20060322, end: 20060405
  2. LITHIUM CARBONATE [Concomitant]
  3. SEROQUEL [Concomitant]

REACTIONS (1)
  - IRRITABILITY [None]
